FAERS Safety Report 18100697 (Version 2)
Quarter: 2020Q3

REPORT INFORMATION
  Report Type: Report from Study
  Country: US (occurrence: US)
  Receive Date: 20200731
  Receipt Date: 20200804
  Transmission Date: 20201103
  Serious: No
  Sender: FDA-Public Use
  Company Number: NVSC2020US210855

PATIENT
  Sex: Female

DRUGS (1)
  1. XIIDRA [Suspect]
     Active Substance: LIFITEGRAST
     Indication: LACRIMATION INCREASED
     Dosage: 1 DRP, QD (EVERY EVENING)
     Route: 047

REACTIONS (5)
  - Eye discharge [Unknown]
  - Dysgeusia [Unknown]
  - Eye irritation [Unknown]
  - Product use in unapproved indication [Unknown]
  - Tongue discomfort [Unknown]
